FAERS Safety Report 21394916 (Version 1)
Quarter: 2022Q3

REPORT INFORMATION
  Report Type: Spontaneous
  Country: DE (occurrence: DE)
  Receive Date: 20220930
  Receipt Date: 20220930
  Transmission Date: 20221027
  Serious: Yes (Hospitalization)
  Sender: FDA-Public Use
  Company Number: DE-ADRED-07537-01

PATIENT
  Age: 67 Year
  Sex: Male

DRUGS (7)
  1. TORSEMIDE [Suspect]
     Active Substance: TORSEMIDE
     Indication: Product used for unknown indication
     Dosage: 10 MG, DEPENDING ON THE BALANCE WEIGHT CLINIC
  2. RAMIPRIL [Concomitant]
     Active Substance: RAMIPRIL
     Indication: Product used for unknown indication
     Dosage: 10 MILLIGRAM DAILY; 5 MG, 1-0-1-0, UNIT DOSE : 5 MG, FREQUENCY :1 IN 12 HOURS
  3. AMLODIPINE [Concomitant]
     Active Substance: AMLODIPINE BESYLATE
     Indication: Product used for unknown indication
     Dosage: 10 MILLIGRAM DAILY; 5 MG, 1-0-1-0, UNIT DOSE : 5 MG, FREQUENCY :1 IN 12 HOURS
  4. CARVEDILOL [Concomitant]
     Active Substance: CARVEDILOL
     Indication: Product used for unknown indication
     Dosage: 50 MILLIGRAM DAILY; 25 MG, 1-0-1-0, UNIT DOSE : 25 MG, FREQUENCY :1 IN 12 HOURS
  5. MOXONIDINE [Concomitant]
     Active Substance: MOXONIDINE
     Indication: Product used for unknown indication
     Dosage: .8 MILLIGRAM DAILY; 0.4 MG, 1-0-1-0, UNIT DOSE :0.4 MG, FREQUENCY :1 IN 12 HOURS
  6. RISPERIDONE [Concomitant]
     Active Substance: RISPERIDONE
     Indication: Product used for unknown indication
     Dosage: 1 MILLIGRAM DAILY; 0.5 MG, 1-0-1-0, UNIT DOSE : 0.5 MG, FREQUENCY :1 IN 12 HOURS
  7. AKINETON [Concomitant]
     Active Substance: BIPERIDEN HYDROCHLORIDE
     Indication: Product used for unknown indication
     Dosage: 2 DOSAGE FORMS DAILY; 1-0-1-0, UNIT DOSE :1 DF, FREQUENCY :1 IN 12 HOURS

REACTIONS (5)
  - General physical health deterioration [Unknown]
  - Tachypnoea [Unknown]
  - Dehydration [Unknown]
  - Pyrexia [Unknown]
  - Renal impairment [Unknown]
